FAERS Safety Report 4313886-6 (Version None)
Quarter: 2004Q1

REPORT INFORMATION
  Report Type: 
  Country: None (occurrence: None)
  Receive Date: 20040302
  Receipt Date: 20030310
  Transmission Date: 20041129
  Serious: Yes (Hospitalization)
  Sender: FDA-Public Use
  Company Number: 002#2#2002-00252(0)

PATIENT
  Sex: Male
  Weight: 74.8435 kg

DRUGS (10)
  1. REGLAN [Suspect]
     Indication: GASTROOESOPHAGEAL REFLUX DISEASE
     Dosage: 10 MG, 2 IN 1 D, ORAL
     Route: 048
     Dates: start: 19900101, end: 20021017
  2. METHADONE [Concomitant]
  3. ALPRAZOLAM [Concomitant]
  4. ATORVASTATIN [Concomitant]
  5. CLARITIN-D [Concomitant]
  6. TAMSULOSIN [Concomitant]
  7. BISACODYL [Concomitant]
  8. TOLMETIN SODIUM [Concomitant]
  9. CYCLOBENZAPRINE [Concomitant]
  10. UNSPECIFIED SLEEPING MEDICATION [Concomitant]

REACTIONS (11)
  - CARDIAC DISORDER [None]
  - DEPRESSION [None]
  - DYSPNOEA [None]
  - ERECTILE DYSFUNCTION [None]
  - FATIGUE [None]
  - HEADACHE [None]
  - HEPATIC ENZYME INCREASED [None]
  - HYPERKINESIA [None]
  - HYPERTENSION [None]
  - MICTURITION DISORDER [None]
  - SOMNOLENCE [None]
